FAERS Safety Report 15906472 (Version 1)
Quarter: 2019Q1

REPORT INFORMATION
  Report Type: Spontaneous
  Country: US (occurrence: US)
  Receive Date: 20190203
  Receipt Date: 20190203
  Transmission Date: 20190417
  Serious: Yes (Other)
  Sender: FDA-Public Use
  Company Number: None

PATIENT
  Age: 30 Year
  Sex: Male
  Weight: 60 kg

DRUGS (1)
  1. FINASTERIDE 1MG [Suspect]
     Active Substance: FINASTERIDE
     Indication: ALOPECIA
     Route: 048
     Dates: start: 20130201, end: 20171201

REACTIONS (9)
  - Sexual dysfunction [None]
  - Loss of libido [None]
  - Unevaluable event [None]
  - Hypersomnia [None]
  - Erectile dysfunction [None]
  - Mood swings [None]
  - Depression [None]
  - Suicidal ideation [None]
  - Thyroid disorder [None]

NARRATIVE: CASE EVENT DATE: 20171201
